FAERS Safety Report 10873938 (Version 1)
Quarter: 2015Q1

REPORT INFORMATION
  Report Type: Spontaneous
  Country: US (occurrence: US)
  Receive Date: 20150227
  Receipt Date: 20150227
  Transmission Date: 20150721
  Serious: No
  Sender: FDA-Public Use
  Company Number: US-ABBVIE-14P-163-1205628-00

PATIENT
  Age: 50 Year
  Sex: Male
  Weight: 70.37 kg

DRUGS (6)
  1. ANDROGEL [Suspect]
     Active Substance: TESTOSTERONE
     Indication: BLOOD TESTOSTERONE DECREASED
     Dosage: 2 PACKETS
     Dates: start: 2003, end: 201310
  2. ANDROGEL [Suspect]
     Active Substance: TESTOSTERONE
     Dosage: ONE PACKET
     Dates: start: 201310, end: 201310
  3. XANAX [Concomitant]
     Active Substance: ALPRAZOLAM
     Indication: ANXIETY
  4. VITAMINS [Concomitant]
     Active Substance: VITAMINS
     Indication: PRODUCT USED FOR UNKNOWN INDICATION
  5. ANDROGEL [Suspect]
     Active Substance: TESTOSTERONE
     Dosage: 2 PACKETS
     Dates: start: 201310
  6. REMERON [Concomitant]
     Active Substance: MIRTAZAPINE
     Indication: DEPRESSION

REACTIONS (2)
  - Incorrect dose administered [Not Recovered/Not Resolved]
  - Blood testosterone increased [Unknown]

NARRATIVE: CASE EVENT DATE: 201310
